FAERS Safety Report 18716923 (Version 1)
Quarter: 2021Q1

REPORT INFORMATION
  Report Type: Other
  Country: US (occurrence: US)
  Receive Date: 20210108
  Receipt Date: 20210108
  Transmission Date: 20210419
  Serious: Yes (Other)
  Sender: FDA-Public Use
  Company Number: US-ROCHE-2741252

PATIENT
  Age: 55 Year
  Sex: Female
  Weight: 58.11 kg

DRUGS (25)
  1. CLONAZEPAM. [Concomitant]
     Active Substance: CLONAZEPAM
     Indication: ANXIETY
     Route: 048
     Dates: start: 20170510
  2. MIDODRINE [Concomitant]
     Active Substance: MIDODRINE
     Dosage: TAKE HALF A TABLET BY MOUTH 3 TIMES DAILY
     Route: 048
     Dates: start: 20170510
  3. TOPIRAMATE. [Concomitant]
     Active Substance: TOPIRAMATE
     Route: 048
     Dates: start: 20170510
  4. METHOTREXATE. [Concomitant]
     Active Substance: METHOTREXATE
     Dosage: 0.8ML PER WEEK FOR 90 DAYS
     Route: 042
  5. ONDANSETRON [Concomitant]
     Active Substance: ONDANSETRON
     Route: 048
     Dates: start: 20161005
  6. OXYCODONE [Concomitant]
     Active Substance: OXYCODONE
     Route: 048
     Dates: start: 20170519
  7. SIMPONI [Concomitant]
     Active Substance: GOLIMUMAB
     Route: 058
     Dates: start: 20170506
  8. ACTEMRA [Suspect]
     Active Substance: TOCILIZUMAB
     Indication: RHEUMATOID ARTHRITIS
     Dosage: INJECT 162MG SUBCUTANEOUSLY EVERY WEEK
     Route: 058
     Dates: start: 20170530
  9. PRAVASTATIN. [Concomitant]
     Active Substance: PRAVASTATIN
     Route: 048
     Dates: start: 20170510
  10. ACTEMRA [Suspect]
     Active Substance: TOCILIZUMAB
  11. BELSOMRA [Concomitant]
     Active Substance: SUVOREXANT
     Route: 048
     Dates: start: 20170510
  12. DICLOFENAC [Concomitant]
     Active Substance: DICLOFENAC
     Dosage: APPLY 2 GRAMS TOPICALLY, 4 TIMES DAILY
     Route: 061
     Dates: start: 20170516
  13. POTASSIUM CHLORIDE. [Concomitant]
     Active Substance: POTASSIUM CHLORIDE
     Route: 048
     Dates: start: 20160913
  14. SUMATRIPTAN. [Concomitant]
     Active Substance: SUMATRIPTAN
     Dates: start: 20161221
  15. MIRTAZAPINE. [Concomitant]
     Active Substance: MIRTAZAPINE
     Dosage: TAKE ONE TABLET BY MOUTH IN THE EVENING
     Dates: start: 20170510
  16. OMEPRAZOLE. [Concomitant]
     Active Substance: OMEPRAZOLE
     Route: 048
     Dates: start: 20170510
  17. POTASSIUM CHLORIDE. [Concomitant]
     Active Substance: POTASSIUM CHLORIDE
     Route: 048
     Dates: start: 20170510
  18. HYDROCODONE [Concomitant]
     Active Substance: HYDROCODONE
     Dosage: TAKE 2 TABLETS BY MOUTH 3 TIMES DAILY
     Route: 048
     Dates: start: 20170515
  19. ACTEMRA [Suspect]
     Active Substance: TOCILIZUMAB
     Indication: RHEUMATOID ARTHRITIS
     Dosage: 4MG/KG
     Route: 042
     Dates: start: 20200130
  20. FLUTICASONE. [Concomitant]
     Active Substance: FLUTICASONE
     Dosage: 2 SPRAYS EACH NOSTRIL
     Dates: start: 20170510
  21. LORAZEPAM. [Concomitant]
     Active Substance: LORAZEPAM
     Dates: start: 20151112
  22. MEDROXYPROGESTERONE [Concomitant]
     Active Substance: MEDROXYPROGESTERONE
     Dates: start: 20160711
  23. MOXIFLOXACINE [Concomitant]
     Active Substance: MOXIFLOXACIN
     Route: 048
     Dates: start: 20170316
  24. QUETIAPINE. [Concomitant]
     Active Substance: QUETIAPINE
     Route: 048
     Dates: start: 20170510
  25. ROPINIROLE. [Concomitant]
     Active Substance: ROPINIROLE
     Route: 048
     Dates: start: 20170510

REACTIONS (11)
  - Urinary tract infection [Unknown]
  - Proteinuria [Unknown]
  - Bradykinesia [Unknown]
  - Carpal tunnel syndrome [Unknown]
  - Lipoma [Unknown]
  - Rectal haemorrhage [Unknown]
  - Colitis ischaemic [Unknown]
  - Haemoglobin decreased [Unknown]
  - Vitamin D deficiency [Unknown]
  - Arthralgia [Unknown]
  - Renal function test abnormal [Unknown]

NARRATIVE: CASE EVENT DATE: 20201130
